FAERS Safety Report 14634479 (Version 5)
Quarter: 2018Q2

REPORT INFORMATION
  Report Type: Spontaneous
  Country: US (occurrence: US)
  Receive Date: 20180314
  Receipt Date: 20180517
  Transmission Date: 20180711
  Serious: Yes (Other)
  Sender: FDA-Public Use
  Company Number: US-HORIZON-RAV-0039-2018

PATIENT
  Age: 44 Year
  Sex: Female

DRUGS (1)
  1. RAVICTI [Suspect]
     Active Substance: GLYCEROL PHENYLBUTYRATE
     Indication: ORNITHINE TRANSCARBAMOYLASE DEFICIENCY
     Dosage: 17.5 ML PER DAY
     Dates: start: 20170221

REACTIONS (20)
  - Peripheral swelling [Unknown]
  - Burning sensation [Unknown]
  - Tissue discolouration [Unknown]
  - Nausea [Unknown]
  - Dizziness [Unknown]
  - Oral discomfort [Unknown]
  - Throat irritation [Unknown]
  - Hypoaesthesia [Unknown]
  - Paraesthesia [Unknown]
  - Foot fracture [Not Recovered/Not Resolved]
  - Type 2 diabetes mellitus [Unknown]
  - Neuropathy peripheral [Unknown]
  - Diarrhoea [Unknown]
  - Weight decreased [Recovered/Resolved]
  - Vomiting [Not Recovered/Not Resolved]
  - Treatment noncompliance [Not Recovered/Not Resolved]
  - Pain in extremity [Recovered/Resolved]
  - Chest pain [Unknown]
  - Tongue discomfort [Unknown]
  - Fall [Unknown]

NARRATIVE: CASE EVENT DATE: 20180313
